FAERS Safety Report 5491543-0 (Version None)
Quarter: 2007Q4

REPORT INFORMATION
  Report Type: 
  Country: None (occurrence: None)
  Receive Date: 20071022
  Receipt Date: 20071012
  Transmission Date: 20080405
  Serious: Yes (Other)
  Sender: FDA-Public Use
  Company Number: PHEH2007US12167

PATIENT
  Age: 71 Year
  Sex: Female

DRUGS (25)
  1. ZOMETA [Suspect]
     Indication: MULTIPLE MYELOMA
     Dosage: 4 MG, QMO
     Dates: start: 20020302, end: 20050810
  2. ZOMETA [Suspect]
     Dosage: 4 MG, ONCE/SINGLE
     Dates: start: 20051227, end: 20051227
  3. ZOMETA [Suspect]
     Dosage: 3.3 MG, QMO
     Dates: start: 20060124, end: 20061010
  4. ZOMETA [Suspect]
     Dosage: 3.3 MG Q3MO
     Dates: start: 20070103, end: 20070627
  5. HYDROMORPHONE HCL [Concomitant]
     Dosage: 4 MG, TID
  6. HYDROCODONE [Concomitant]
  7. PHENERGAN HCL [Concomitant]
  8. MORPHINE [Concomitant]
     Route: 048
  9. CLARITIN [Concomitant]
     Dosage: 10 MG, UNK
     Route: 048
  10. TIZANIDINE HCL [Concomitant]
     Dosage: 4 MG, QD
  11. DARBEPOETIN ALFA [Concomitant]
     Dosage: 200 UNK, UNK
     Route: 058
     Dates: start: 20050601, end: 20050601
  12. EPOETIN ALFA [Concomitant]
     Dosage: 800000 U, UNK
     Route: 058
     Dates: start: 20060221, end: 20060221
  13. FENTANYL [Concomitant]
     Dosage: 100 MMOL, PRN
     Dates: start: 20050325, end: 20050325
  14. INFLUENZA VACCINE [Concomitant]
     Dosage: UNK, ONCE/SINGLE
     Route: 030
     Dates: start: 20061010, end: 20061010
  15. IODIXANOL [Concomitant]
     Dosage: 540 MG, UNK
     Dates: start: 20050325, end: 20050325
  16. MIDAZOLAM [Concomitant]
     Dosage: 5 MG, PRN
     Dates: start: 20050325, end: 20050325
  17. AMITRIPTYLINE HCL [Concomitant]
     Dosage: 50 MG, QHS
     Route: 048
  18. ASPIRIN [Concomitant]
     Dosage: 325 MG, PRN2SD
     Route: 048
  19. IRON [Concomitant]
     Indication: ANAEMIA
  20. SYNTHROID [Concomitant]
     Indication: HYPOTHYROIDISM
     Dosage: 100 MMOL, UNK
     Dates: start: 19940101
  21. AREDIA [Suspect]
     Indication: MULTIPLE MYELOMA
     Dosage: UNK, UNK
     Dates: start: 20000901, end: 20020205
  22. VINCRISTINE [Concomitant]
     Indication: MULTIPLE MYELOMA
     Dosage: 4 CYCLES
     Dates: end: 20020815
  23. ADRIAMYCIN PFS [Concomitant]
     Indication: MULTIPLE MYELOMA
     Dosage: 4 CYCLES
     Dates: end: 20070815
  24. DEXAMETHASONE 0.5MG TAB [Concomitant]
     Indication: MULTIPLE MYELOMA
     Dosage: 4 CYCLES
     Dates: end: 20000815
  25. THALIDOMIDE [Concomitant]
     Indication: MULTIPLE MYELOMA
     Dosage: 4 CYCLES
     Dates: end: 20070815

REACTIONS (20)
  - ARTHRALGIA [None]
  - ASTHENIA [None]
  - BALANCE DISORDER [None]
  - BONE DISORDER [None]
  - CATARACT OPERATION [None]
  - CHOLECYSTECTOMY [None]
  - CONSTIPATION [None]
  - GINGIVAL SWELLING [None]
  - GINGIVITIS [None]
  - INSOMNIA [None]
  - MASTICATION DISORDER [None]
  - MULTIPLE MYELOMA [None]
  - MYALGIA [None]
  - NAUSEA [None]
  - NEURALGIA [None]
  - NEUROPATHY PERIPHERAL [None]
  - ORAL DISORDER [None]
  - OSTEONECROSIS [None]
  - PAIN IN JAW [None]
  - WEIGHT DECREASED [None]
